FAERS Safety Report 24720528 (Version 2)
Quarter: 2024Q4

REPORT INFORMATION
  Report Type: Report from Study
  Country: EG (occurrence: EG)
  Receive Date: 20241211
  Receipt Date: 20241231
  Transmission Date: 20250114
  Serious: Yes (Other)
  Sender: ROCHE
  Company Number: EG-ROCHE-10000152559

PATIENT
  Age: 41 Year
  Sex: Female

DRUGS (2)
  1. PHESGO [Suspect]
     Active Substance: HYALURONIDASE-ZZXF\PERTUZUMAB\TRASTUZUMAB
     Indication: Breast cancer metastatic
     Dosage: 1200/600 MG
     Route: 058
     Dates: start: 202312, end: 202312
  2. PHESGO [Suspect]
     Active Substance: HYALURONIDASE-ZZXF\PERTUZUMAB\TRASTUZUMAB
     Dosage: 600/600 MG
     Route: 058
     Dates: start: 202401

REACTIONS (4)
  - Vomiting [Not Recovered/Not Resolved]
  - Headache [Not Recovered/Not Resolved]
  - Skin discolouration [Recovered/Resolved]
  - Breast neoplasm [Recovered/Resolved]

NARRATIVE: CASE EVENT DATE: 20231214
